FAERS Safety Report 18007654 (Version 1)
Quarter: 2020Q3

REPORT INFORMATION
  Report Type: Spontaneous
  Country: IT (occurrence: IT)
  Receive Date: 20200710
  Receipt Date: 20200710
  Transmission Date: 20201103
  Serious: Yes (Other)
  Sender: FDA-Public Use
  Company Number: IT-MYLANLABS-2020M1061862

PATIENT
  Age: 60 Year
  Sex: Female

DRUGS (4)
  1. VERAPAMIL [Concomitant]
     Active Substance: VERAPAMIL HYDROCHLORIDE
     Indication: CLUSTER HEADACHE
     Dosage: UP TO THE DOSE OF 240 MG TID
  2. LITHIUM. [Suspect]
     Active Substance: LITHIUM
     Indication: CLUSTER HEADACHE
     Dosage: UP TO THE DOSE OF 300 MG TID
  3. TOPIRAMATE. [Concomitant]
     Active Substance: TOPIRAMATE
     Indication: CLUSTER HEADACHE
     Dosage: UP TO THE DOSE OF 100 MG BID
  4. SUMATRIPTAN. [Suspect]
     Active Substance: SUMATRIPTAN
     Indication: CLUSTER HEADACHE
     Dosage: 6 MG/0.5 ML

REACTIONS (3)
  - Adverse event [Unknown]
  - Tremor [Unknown]
  - Hepatic necrosis [Unknown]
